FAERS Safety Report 17668304 (Version 1)
Quarter: 2020Q2

REPORT INFORMATION
  Report Type: Spontaneous
  Country: ES (occurrence: ES)
  Receive Date: 20200414
  Receipt Date: 20200414
  Transmission Date: 20200713
  Serious: Yes (Other)
  Sender: FDA-Public Use
  Company Number: ES-AUROBINDO-AUR-APL-2020-018208

PATIENT
  Age: 64 Year
  Sex: Female

DRUGS (5)
  1. DICLOFENAC SODIUM. [Suspect]
     Active Substance: DICLOFENAC SODIUM
     Indication: POSTOPERATIVE CARE
     Dosage: 1 DOSAGE FORM, 3 TIMES A DAY
     Route: 065
     Dates: start: 2019
  2. MITOMYCIN C [Suspect]
     Active Substance: MITOMYCIN
     Indication: INTRAOPERATIVE CARE
     Dosage: UNK (0.2 MILLIGRAM PER MILLILETER)
     Route: 065
     Dates: start: 2019
  3. MOXIFLOXACIN. [Suspect]
     Active Substance: MOXIFLOXACIN
     Indication: INTRAOPERATIVE CARE
     Dosage: UNK (0.1ML OF 5MG/ML)
     Route: 065
     Dates: start: 2019
  4. PREDNISOLONE. [Suspect]
     Active Substance: PREDNISOLONE
     Indication: POSTOPERATIVE CARE
     Dosage: 1 DOSAGE FORM, 3 TIMES A DAY
     Route: 065
     Dates: start: 2019
  5. PREDNISOLONE. [Suspect]
     Active Substance: PREDNISOLONE
     Dosage: 1 DOSAGE FORM, FOUR TIMES/DAY
     Route: 065

REACTIONS (1)
  - Iris transillumination defect [Unknown]
